FAERS Safety Report 5008782-5 (Version None)
Quarter: 2006Q2

REPORT INFORMATION
  Report Type: 
  Country: None (occurrence: None)
  Receive Date: 20060517
  Receipt Date: 20060515
  Transmission Date: 20061013
  Serious: Yes (Hospitalization)
  Sender: FDA-Public Use
  Company Number: 219927

PATIENT
  Age: 56 Year
  Sex: Female
  Weight: 48.2 kg

DRUGS (12)
  1. AVASTIN [Suspect]
     Indication: COLORECTAL CANCER METASTATIC
     Dosage: 240 MG, Q2W, INTRAVENOUS
     Route: 042
     Dates: start: 20051121
  2. IRINOTECAN HCL [Suspect]
     Indication: COLORECTAL CANCER METASTATIC
     Dates: start: 20051121
  3. FLUOROURACIL [Suspect]
     Indication: COLORECTAL CANCER METASTATIC
     Dates: start: 20051121
  4. LEUCOVORIN CALCIUM [Suspect]
     Indication: COLORECTAL CANCER METASTATIC
     Dates: start: 20051121
  5. VANCOMYCIN HYDROCHLORIDE [Concomitant]
  6. CALCIUM (CALCIUM NOS) [Concomitant]
  7. VITAMIN D (CHOLECALCIFEROL) [Concomitant]
  8. INHIBACE (CANADA) (CILAZAPRIL) [Concomitant]
  9. CELEXA [Concomitant]
  10. ZOFRAN [Concomitant]
  11. PROCHLORPERAZINE [Concomitant]
  12. DECADRON SRC [Concomitant]

REACTIONS (2)
  - MUSCLE SPASMS [None]
  - TREMOR [None]
